FAERS Safety Report 9978289 (Version 1)
Quarter: 2014Q1

REPORT INFORMATION
  Report Type: Spontaneous
  Country: US (occurrence: US)
  Receive Date: 20140306
  Receipt Date: 20140306
  Transmission Date: 20141002
  Serious: Yes (Death)
  Sender: FDA-Public Use
  Company Number: US-BANPHARM-20142393

PATIENT
  Age: 57 Year
  Sex: Female

DRUGS (7)
  1. DIPHENHYDRAMINE UNKNOWN PRODUCT [Suspect]
     Route: 048
  2. HEROIN [Suspect]
  3. ALPRAZOLAM [Suspect]
  4. COCAINE [Suspect]
  5. QUETIAPINE [Suspect]
  6. CYCLOBENZAPRINE [Concomitant]
  7. SERTRALINE [Concomitant]

REACTIONS (2)
  - Death [Fatal]
  - Drug abuse [Fatal]
